FAERS Safety Report 9464229 (Version 1)
Quarter: 2013Q3

REPORT INFORMATION
  Report Type: Spontaneous
  Country: US (occurrence: US)
  Receive Date: 20130819
  Receipt Date: 20130819
  Transmission Date: 20140515
  Serious: Yes (Other)
  Sender: FDA-Public Use
  Company Number: US-PFIZER INC-2013239002

PATIENT
  Sex: Male
  Weight: 90.7 kg

DRUGS (4)
  1. LIPITOR [Suspect]
     Indication: BLOOD CHOLESTEROL INCREASED
     Dosage: 20 MG, 1X/DAY
     Route: 048
  2. LIPITOR [Suspect]
     Dosage: 10 MG, 2X/DAY
     Route: 048
  3. LIPITOR [Suspect]
     Dosage: UNK
     Route: 048
  4. LOMOTIL [Concomitant]
     Dosage: UNK

REACTIONS (2)
  - Prostate cancer [Unknown]
  - Drug intolerance [Unknown]
